FAERS Safety Report 24427016 (Version 1)
Quarter: 2024Q4

REPORT INFORMATION
  Report Type: Spontaneous
  Country: US (occurrence: None)
  Receive Date: 20241010
  Receipt Date: 20241010
  Transmission Date: 20250115
  Serious: Yes (Disabling, Other)
  Sender: Public
  Company Number: None

PATIENT
  Age: 23 Year
  Sex: Female
  Weight: 57.15 kg

DRUGS (5)
  1. JEUVEAU [Suspect]
     Active Substance: PRABOTULINUMTOXINA-XVFS
     Indication: Personal hygiene
     Dosage: OTHER QUANTITY : 12 INJECTION(S);?
     Route: 030
     Dates: start: 20240812, end: 20240812
  2. Omeprozale [Concomitant]
  3. MIRALAX [Concomitant]
     Active Substance: POLYETHYLENE GLYCOL 3350
  4. Dulcalax [Concomitant]
  5. Tylonol [Concomitant]

REACTIONS (16)
  - Muscular weakness [None]
  - Vision blurred [None]
  - Fatigue [None]
  - Vertigo [None]
  - Dysphonia [None]
  - Speech disorder [None]
  - Dyspnoea [None]
  - Dysphagia [None]
  - Dry mouth [None]
  - Dysphagia [None]
  - Constipation [None]
  - Dyspepsia [None]
  - Tachycardia [None]
  - Chills [None]
  - Muscle twitching [None]
  - Eyelid irritation [None]

NARRATIVE: CASE EVENT DATE: 20240812
